FAERS Safety Report 8511571-8 (Version None)
Quarter: 2012Q3

REPORT INFORMATION
  Report Type: 
  Country: None (occurrence: None)
  Receive Date: 20120710
  Receipt Date: 20120710
  Transmission Date: 20120928
  Serious: Yes (Hospitalization)
  Sender: FDA-Public Use
  Company Number: None

PATIENT
  Age: 70 Year
  Sex: Male
  Weight: 67.3 kg

DRUGS (1)
  1. METHYLPREDNISOLONE [Suspect]
     Dosage: 1000 MG ONCE IV
     Route: 042
     Dates: start: 20120706, end: 20120706

REACTIONS (5)
  - RASH [None]
  - ERYTHEMA [None]
  - FLUSHING [None]
  - PRURITUS [None]
  - INFUSION RELATED REACTION [None]
